FAERS Safety Report 4659214-8 (Version None)
Quarter: 2005Q2

REPORT INFORMATION
  Report Type: 
  Country: None (occurrence: None)
  Receive Date: 20050511
  Receipt Date: 20050503
  Transmission Date: 20051028
  Serious: Yes (Other)
  Sender: FDA-Public Use
  Company Number: 2005AC00695

PATIENT
  Age: 26 Year
  Sex: Female

DRUGS (2)
  1. BUPIVACAINE [Suspect]
     Indication: ANAESTHESIA
     Dosage: INCREMENTAL DOSING OF 3ML TIMES 3
     Route: 037
  2. NAROPIN [Suspect]
     Indication: ANAESTHESIA
     Route: 037

REACTIONS (5)
  - ANAESTHETIC COMPLICATION [None]
  - ASTHENIA [None]
  - CAESAREAN SECTION [None]
  - DRUG EXPOSURE DURING PREGNANCY [None]
  - HYPOTENSION [None]
